FAERS Safety Report 9410982 (Version 6)
Quarter: 2013Q4

REPORT INFORMATION
  Report Type: Spontaneous
  Country: US (occurrence: US)
  Receive Date: 20130719
  Receipt Date: 20131115
  Transmission Date: 20140711
  Serious: Yes (Hospitalization)
  Sender: FDA-Public Use
  Company Number: US-TMC-CABO-13002981

PATIENT
  Age: 90 Year
  Sex: Male

DRUGS (12)
  1. COMETRIQ [Suspect]
     Indication: PINEAL PARENCHYMAL NEOPLASM MALIGNANT
     Dosage: 140 MG, QD
     Route: 048
     Dates: start: 20130629, end: 20130707
  2. COMETRIQ [Suspect]
     Dosage: 140 MG, QD
     Route: 048
     Dates: start: 20130711, end: 20130801
  3. COMETRIQ [Suspect]
     Dosage: 100 MG, QD
     Route: 048
     Dates: start: 20130830, end: 20131003
  4. RANEXA [Concomitant]
  5. PRAVASTATIN [Concomitant]
  6. VERAPAMIL [Concomitant]
  7. FOLIC ACID [Concomitant]
  8. AVODART [Concomitant]
  9. WARFARIN [Concomitant]
  10. MAGNESIUM CHLORIDE [Concomitant]
  11. TAMSULOSIN [Concomitant]
  12. SOTALOL [Concomitant]

REACTIONS (10)
  - Off label use [Unknown]
  - Dyspnoea [Not Recovered/Not Resolved]
  - Nausea [Recovered/Resolved]
  - Chest discomfort [Recovered/Resolved]
  - Diarrhoea [Recovered/Resolved]
  - Dysphonia [Not Recovered/Not Resolved]
  - Constipation [Recovered/Resolved]
  - Asthenia [Not Recovered/Not Resolved]
  - Decreased appetite [Unknown]
  - Fatigue [Not Recovered/Not Resolved]
